FAERS Safety Report 6113913-X (Version None)
Quarter: 2009Q1

REPORT INFORMATION
  Report Type: 
  Country: None (occurrence: None)
  Receive Date: 20090312
  Receipt Date: 20080905
  Transmission Date: 20090719
  Serious: No
  Sender: FDA-Public Use
  Company Number: US-ABBOTT-08P-163-0474538-00

PATIENT
  Sex: Female

DRUGS (1)
  1. LUPRON DEPOT [Suspect]
     Indication: METRORRHAGIA
     Route: 050
     Dates: start: 20080501, end: 20080501

REACTIONS (1)
  - INJECTION SITE NODULE [None]
